FAERS Safety Report 4918542-9 (Version None)
Quarter: 2006Q1

REPORT INFORMATION
  Report Type: 
  Country: None (occurrence: None)
  Receive Date: 20060222
  Receipt Date: 20060210
  Transmission Date: 20060701
  Serious: Yes (Other)
  Sender: FDA-Public Use
  Company Number: CA-BRISTOL-MYERS SQUIBB COMPANY-13282264

PATIENT
  Age: 46 Year
  Sex: Male

DRUGS (10)
  1. HYDREA [Suspect]
  2. AMITRIPTYLINE HCL [Suspect]
  3. INTRON A [Suspect]
     Route: 058
  4. WELLFERON [Suspect]
  5. CYCLOPHOSPHAMIDE [Concomitant]
  6. FOSINOPRIL SODIUM [Concomitant]
  7. DIALYSIS SOLUTION [Concomitant]
  8. METOPROLOL [Concomitant]
  9. NIFEDIPINE [Concomitant]
  10. PREDNISONE [Concomitant]

REACTIONS (12)
  - ANAEMIA [None]
  - ANGIOPATHY [None]
  - BLOOD CREATININE INCREASED [None]
  - BLOOD UREA INCREASED [None]
  - COORDINATION ABNORMAL [None]
  - HAEMOLYTIC URAEMIC SYNDROME [None]
  - HYPERTENSION [None]
  - HYPOPROTEINAEMIA [None]
  - NEPHROTIC SYNDROME [None]
  - OEDEMA PERIPHERAL [None]
  - PROTEINURIA [None]
  - RAYNAUD'S PHENOMENON [None]
